FAERS Safety Report 9026499 (Version 2)
Quarter: 2013Q4

REPORT INFORMATION
  Report Type: Spontaneous
  Country: US (occurrence: US)
  Receive Date: 20130123
  Receipt Date: 20131220
  Transmission Date: 20140711
  Serious: Yes (Other)
  Sender: FDA-Public Use
  Company Number: US-JNJFOC-20130107057

PATIENT
  Age: 69 Year
  Sex: Male
  Weight: 86.18 kg

DRUGS (2)
  1. REMICADE [Suspect]
     Indication: PSORIATIC ARTHROPATHY
     Route: 042
     Dates: end: 201203
  2. REMICADE [Suspect]
     Indication: PSORIATIC ARTHROPATHY
     Dosage: V1: INFLIXIMAB STARTED 7 YEARS AGO FROM THE TIME OF THE REPORT
     Route: 042

REACTIONS (1)
  - Neoplasm [Not Recovered/Not Resolved]
